FAERS Safety Report 17581169 (Version 5)
Quarter: 2022Q1

REPORT INFORMATION
  Report Type: Report from Study
  Country: CA (occurrence: CA)
  Receive Date: 20200325
  Receipt Date: 20220125
  Transmission Date: 20220424
  Serious: Yes (Other)
  Sender: FDA-Public Use
  Company Number: NVSC2020CA043083

PATIENT
  Sex: Female

DRUGS (10)
  1. XOLAIR [Suspect]
     Active Substance: OMALIZUMAB
     Indication: Chronic spontaneous urticaria
     Dosage: 300 MG (EVERY 4 WEEKS)
     Route: 058
     Dates: start: 20200114
  2. XOLAIR [Suspect]
     Active Substance: OMALIZUMAB
     Dosage: 300 MG (EVERY 4 WEEKS)
     Route: 058
     Dates: start: 20200211
  3. XOLAIR [Suspect]
     Active Substance: OMALIZUMAB
     Dosage: 300 MG, (EVERY 4 WEEKS)
     Route: 058
     Dates: start: 20200310, end: 20200407
  4. LATANOPROST [Suspect]
     Active Substance: LATANOPROST
     Indication: Intraocular pressure test abnormal
     Dosage: 2 DF (0.006), QD
     Route: 047
     Dates: start: 1999
  5. REACTINE [Concomitant]
     Indication: Product used for unknown indication
     Dosage: UNK, QD
     Route: 065
     Dates: start: 201805
  6. AERIUS [Concomitant]
     Indication: Product used for unknown indication
     Dosage: UNK, BID
     Route: 065
     Dates: start: 201805
  7. JANUVIA [Concomitant]
     Active Substance: SITAGLIPTIN PHOSPHATE
     Indication: Product used for unknown indication
     Dosage: 50 MG
     Route: 065
  8. CALCIUM\CHOLECALCIFEROL [Concomitant]
     Active Substance: CALCIUM\CHOLECALCIFEROL
     Indication: Product used for unknown indication
     Route: 065
  9. TOPICORT [Concomitant]
     Active Substance: DESOXIMETASONE
     Indication: Chronic spontaneous urticaria
     Dosage: 1 DF (0.25), QD
     Route: 061
     Dates: start: 2017
  10. CLOBETASOL [Concomitant]
     Active Substance: CLOBETASOL
     Indication: Product used for unknown indication
     Dosage: 1 DF, BID
     Route: 061
     Dates: start: 2019

REACTIONS (14)
  - Urticaria [Recovered/Resolved]
  - Pruritus [Not Recovered/Not Resolved]
  - Body temperature decreased [Unknown]
  - Blood pressure systolic increased [Unknown]
  - Urticaria [Recovering/Resolving]
  - Scratch [Recovering/Resolving]
  - Scab [Unknown]
  - General physical health deterioration [Unknown]
  - Skin plaque [Unknown]
  - Burning sensation [Unknown]
  - Sleep disorder [Unknown]
  - Pain [Unknown]
  - Injection site hypersensitivity [Unknown]
  - Drug ineffective [Unknown]

NARRATIVE: CASE EVENT DATE: 20200101
